FAERS Safety Report 19924696 (Version 1)
Quarter: 2021Q4

REPORT INFORMATION
  Report Type: Spontaneous
  Country: FR (occurrence: FR)
  Receive Date: 20211006
  Receipt Date: 20211006
  Transmission Date: 20220303
  Serious: Yes (Hospitalization)
  Sender: FDA-Public Use
  Company Number: FR-ABBVIE-21K-056-4108906-00

PATIENT
  Age: 80 Year
  Sex: Male

DRUGS (4)
  1. DEPAKOTE [Suspect]
     Active Substance: DIVALPROEX SODIUM
     Indication: Agitation
     Route: 048
     Dates: start: 20181008, end: 20181023
  2. IMOVANE [Suspect]
     Active Substance: ZOPICLONE
     Indication: Agitation
     Route: 048
     Dates: start: 20181008, end: 20181023
  3. TIAPRIDE HYDROCHLORIDE [Suspect]
     Active Substance: TIAPRIDE HYDROCHLORIDE
     Indication: Agitation
     Route: 048
     Dates: start: 20181008, end: 20181023
  4. LOXAPINE [Suspect]
     Active Substance: LOXAPINE
     Indication: Agitation
     Route: 048
     Dates: start: 20181008, end: 20181023

REACTIONS (4)
  - Depressed level of consciousness [Unknown]
  - Fall [Unknown]
  - Bronchial obstruction [Unknown]
  - Agitation [Unknown]

NARRATIVE: CASE EVENT DATE: 20181022
